FAERS Safety Report 11481154 (Version 1)
Quarter: 2015Q3

REPORT INFORMATION
  Report Type: Spontaneous
  Country: HU (occurrence: HU)
  Receive Date: 20150909
  Receipt Date: 20150909
  Transmission Date: 20151125
  Serious: Yes (Other)
  Sender: FDA-Public Use
  Company Number: HU-GLAXOSMITHKLINE-HU2015126534

PATIENT
  Age: 28 Year
  Sex: Female

DRUGS (1)
  1. MALARONE [Suspect]
     Active Substance: ATOVAQUONE\PROGUANIL HYDROCHLORIDE
     Indication: MALARIA PROPHYLAXIS
     Route: 048
     Dates: start: 20150805, end: 20150823

REACTIONS (12)
  - Headache [Recovered/Resolved]
  - Nightmare [Recovered/Resolved]
  - Restlessness [Recovered/Resolved]
  - Photophobia [Recovered/Resolved]
  - Malaise [Recovered/Resolved]
  - Depression [Recovered/Resolved]
  - Hypersensitivity [Recovered/Resolved]
  - Lethargy [Recovered/Resolved]
  - Chest discomfort [Not Recovered/Not Resolved]
  - Fatigue [Recovered/Resolved]
  - Mood swings [Recovered/Resolved]
  - Throat tightness [Recovered/Resolved]

NARRATIVE: CASE EVENT DATE: 20150806
